FAERS Safety Report 6438798-3 (Version None)
Quarter: 2009Q4

REPORT INFORMATION
  Report Type: 
  Country: None (occurrence: None)
  Receive Date: 20091113
  Receipt Date: 20091105
  Transmission Date: 20100525
  Serious: Yes (Other)
  Sender: FDA-Public Use
  Company Number: SE-JNJFOC-20091101850

PATIENT
  Age: 17 Year
  Sex: Female

DRUGS (3)
  1. CONCERTA [Suspect]
     Indication: ATTENTION DEFICIT/HYPERACTIVITY DISORDER
     Route: 048
  2. SERTRALINE HCL [Suspect]
     Indication: DRUG USE FOR UNKNOWN INDICATION
     Route: 065
  3. YASMIN [Concomitant]
     Route: 065

REACTIONS (8)
  - AURICULAR SWELLING [None]
  - DEPRESSED LEVEL OF CONSCIOUSNESS [None]
  - ERYTHEMA [None]
  - EYE SWELLING [None]
  - HEADACHE [None]
  - JOINT SWELLING [None]
  - PRURITUS [None]
  - RASH [None]
